FAERS Safety Report 15276664 (Version 1)
Quarter: 2018Q3

REPORT INFORMATION
  Report Type: Spontaneous
  Country: US (occurrence: US)
  Receive Date: 20180814
  Receipt Date: 20180814
  Transmission Date: 20181010
  Serious: Yes (Other)
  Sender: FDA-Public Use
  Company Number: US-BAYER-2018-125821

PATIENT
  Age: 36 Year
  Weight: 93.42 kg

DRUGS (1)
  1. MIRENA [Suspect]
     Active Substance: LEVONORGESTREL
     Indication: CONTRACEPTION
     Dosage: 20 MCG/24HR, CONT
     Route: 015
     Dates: start: 20180409, end: 20180608

REACTIONS (8)
  - Pelvic pain [None]
  - Menorrhagia [None]
  - Perineal pain [None]
  - Polymenorrhoea [None]
  - Embedded device [None]
  - Uterine spasm [None]
  - Uterine leiomyoma [None]
  - Vaginal haemorrhage [None]

NARRATIVE: CASE EVENT DATE: 20180703
